FAERS Safety Report 12745566 (Version 2)
Quarter: 2016Q4

REPORT INFORMATION
  Report Type: Spontaneous
  Country: ES (occurrence: ES)
  Receive Date: 20160915
  Receipt Date: 20161001
  Transmission Date: 20170207
  Serious: Yes (Other)
  Sender: FDA-Public Use
  Company Number: ES-SUN PHARMACEUTICAL INDUSTRIES LTD-2016RR-123953

PATIENT
  Age: 41 Year
  Sex: Male

DRUGS (5)
  1. EBASTINE [Suspect]
     Active Substance: EBASTINE
     Indication: CHRONIC SPONTANEOUS URTICARIA
     Route: 065
  2. LORATADINE. [Suspect]
     Active Substance: LORATADINE
     Indication: CHRONIC SPONTANEOUS URTICARIA
     Route: 065
  3. DEXCHLORPHENIRAMINE [Suspect]
     Active Substance: DEXCHLORPHENIRAMINE
     Indication: CHRONIC SPONTANEOUS URTICARIA
     Route: 065
  4. RUPATADINE [Suspect]
     Active Substance: RUPATADINE
     Indication: CHRONIC SPONTANEOUS URTICARIA
     Route: 065
  5. CETRIZINE [Suspect]
     Active Substance: CETIRIZINE HYDROCHLORIDE
     Indication: CHRONIC SPONTANEOUS URTICARIA
     Route: 065

REACTIONS (3)
  - Urticaria [Recovered/Resolved]
  - Angioedema [Recovered/Resolved]
  - Drug ineffective [Recovered/Resolved]
